FAERS Safety Report 6525074-3 (Version None)
Quarter: 2009Q4

REPORT INFORMATION
  Report Type: 
  Country: None (occurrence: None)
  Receive Date: 20091222
  Receipt Date: 20091210
  Transmission Date: 20100525
  Serious: Yes (Hospitalization, Other)
  Sender: FDA-Public Use
  Company Number: 014622

PATIENT
  Age: 42 Year
  Sex: Female

DRUGS (16)
  1. PRIALT [Suspect]
     Indication: POST LAMINECTOMY SYNDROME
     Dosage: SEE IMAGE
     Route: 037
     Dates: start: 20090629, end: 20090101
  2. PRIALT [Suspect]
     Indication: POST LAMINECTOMY SYNDROME
     Dosage: SEE IMAGE
     Route: 037
     Dates: start: 20090701, end: 20090701
  3. PRIALT [Suspect]
     Indication: POST LAMINECTOMY SYNDROME
     Dosage: SEE IMAGE
     Route: 037
     Dates: start: 20090706, end: 20090701
  4. PRIALT [Suspect]
     Indication: POST LAMINECTOMY SYNDROME
     Dosage: SEE IMAGE
     Route: 037
     Dates: start: 20090708, end: 20090701
  5. PRIALT [Suspect]
     Indication: POST LAMINECTOMY SYNDROME
     Dosage: SEE IMAGE
     Route: 037
     Dates: start: 20090720, end: 20090801
  6. PRIALT [Suspect]
     Indication: POST LAMINECTOMY SYNDROME
     Dosage: SEE IMAGE
     Route: 037
     Dates: start: 20001024, end: 20091026
  7. PRIALT [Suspect]
     Indication: POST LAMINECTOMY SYNDROME
     Dosage: SEE IMAGE
     Route: 037
     Dates: start: 20090807
  8. PRIALT [Suspect]
     Indication: POST LAMINECTOMY SYNDROME
     Dosage: SEE IMAGE
     Route: 037
     Dates: start: 20091015
  9. PRIALT [Suspect]
     Indication: POST LAMINECTOMY SYNDROME
     Dosage: SEE IMAGE
     Route: 037
     Dates: start: 20091111
  10. CYMBALTA [Concomitant]
  11. LYRICA [Concomitant]
  12. HYDROMORPHONE HCL [Concomitant]
  13. FLUPIRTINE MALEATE [Concomitant]
  14. ARCOXIA [Concomitant]
  15. ORAMORPH SR [Concomitant]
  16. ATOSIL /00133602/ (ISOPROMETHAZINE HYDROCHLORIDE) [Concomitant]

REACTIONS (11)
  - BALANCE DISORDER [None]
  - COMA [None]
  - CONFUSIONAL STATE [None]
  - DIZZINESS [None]
  - DYSKINESIA [None]
  - FEELING COLD [None]
  - HYPERHIDROSIS [None]
  - MEMORY IMPAIRMENT [None]
  - SOMNOLENCE [None]
  - SPEECH DISORDER [None]
  - SYNCOPE [None]
